FAERS Safety Report 21476523 (Version 2)
Quarter: 2022Q4

REPORT INFORMATION
  Report Type: Other
  Country: US (occurrence: None)
  Receive Date: 20221019
  Receipt Date: 20221020
  Transmission Date: 20230112
  Serious: No
  Sender: FDA-Public Use
  Company Number: US-ROCHE-3197719

PATIENT
  Age: 50 Year
  Sex: Male
  Weight: 120 kg

DRUGS (31)
  1. XOLAIR [Suspect]
     Active Substance: OMALIZUMAB
     Indication: Asthma
     Dosage: 225 MG
     Route: 058
     Dates: start: 20060530
  2. XOLAIR [Suspect]
     Active Substance: OMALIZUMAB
  3. XOLAIR [Suspect]
     Active Substance: OMALIZUMAB
  4. XOLAIR [Suspect]
     Active Substance: OMALIZUMAB
     Indication: Nasal congestion
     Route: 058
     Dates: start: 20220808
  5. XOLAIR [Suspect]
     Active Substance: OMALIZUMAB
  6. XOLAIR [Suspect]
     Active Substance: OMALIZUMAB
  7. XOLAIR [Suspect]
     Active Substance: OMALIZUMAB
     Route: 058
     Dates: start: 20220808
  8. XOLAIR [Suspect]
     Active Substance: OMALIZUMAB
  9. XOLAIR [Suspect]
     Active Substance: OMALIZUMAB
  10. XOLAIR [Suspect]
     Active Substance: OMALIZUMAB
     Route: 058
     Dates: start: 20220710
  11. XOLAIR [Suspect]
     Active Substance: OMALIZUMAB
  12. XOLAIR [Suspect]
     Active Substance: OMALIZUMAB
  13. XOLAIR [Suspect]
     Active Substance: OMALIZUMAB
     Route: 058
     Dates: start: 20220710
  14. XOLAIR [Suspect]
     Active Substance: OMALIZUMAB
  15. XOLAIR [Suspect]
     Active Substance: OMALIZUMAB
  16. ALBUTEROL [Concomitant]
     Active Substance: ALBUTEROL
  17. AZELASTINE [Concomitant]
     Active Substance: AZELASTINE
  18. CETIRIZINE [Concomitant]
     Active Substance: CETIRIZINE HYDROCHLORIDE
  19. CHOLECALCIFEROL [Concomitant]
     Active Substance: CHOLECALCIFEROL
  20. VITAMIN D3 [Concomitant]
     Active Substance: CHOLECALCIFEROL
  21. EPINEPHRINE [Concomitant]
     Active Substance: EPINEPHRINE
  22. FLUTICASONE FUROATE [Concomitant]
     Active Substance: FLUTICASONE FUROATE
  23. TRELEGY ELLIPTA [Concomitant]
     Active Substance: FLUTICASONE FUROATE\UMECLIDINIUM BROMIDE\VILANTEROL TRIFENATATE
  24. FUROSEMIDE [Concomitant]
     Active Substance: FUROSEMIDE
  25. GUAIFENESIN [Concomitant]
     Active Substance: GUAIFENESIN
  26. IPRATROPIUM [Concomitant]
     Active Substance: IPRATROPIUM
  27. LEVALBUTEROL [Concomitant]
     Active Substance: LEVALBUTEROL
  28. METOPROLOL [Concomitant]
     Active Substance: METOPROLOL
  29. OMEPRAZOLE [Concomitant]
     Active Substance: OMEPRAZOLE
  30. ATORVASTATIN [Concomitant]
     Active Substance: ATORVASTATIN
  31. TESTOSTERONE [Concomitant]
     Active Substance: TESTOSTERONE

REACTIONS (2)
  - Pain [Not Recovered/Not Resolved]
  - Needle issue [Unknown]

NARRATIVE: CASE EVENT DATE: 20200904
